FAERS Safety Report 5864178-5 (Version None)
Quarter: 2008Q3

REPORT INFORMATION
  Report Type: 
  Country: None (occurrence: None)
  Receive Date: 20080829
  Receipt Date: 20080818
  Transmission Date: 20090109
  Serious: Yes (Death, Hospitalization)
  Sender: FDA-Public Use
  Company Number: AU-ROCHE-581524

PATIENT
  Age: 24 Year
  Sex: Female

DRUGS (2)
  1. ISOTRETINOIN [Suspect]
     Indication: ACNE
     Route: 065
  2. YASMIN [Suspect]
     Indication: ACNE
     Dosage: REPORTED DURATION: ^ABOUT 4 MONTHS^
     Route: 065
     Dates: start: 20080401

REACTIONS (3)
  - COUGH [None]
  - DYSPNOEA [None]
  - PULMONARY EMBOLISM [None]
